FAERS Safety Report 18893172 (Version 2)
Quarter: 2021Q1

REPORT INFORMATION
  Report Type: Spontaneous
  Country: US (occurrence: US)
  Receive Date: 20210215
  Receipt Date: 20210226
  Transmission Date: 20210420
  Serious: Yes (Hospitalization, Other)
  Sender: FDA-Public Use
  Company Number: US-AMGEN-USASP2021020956

PATIENT
  Age: 75 Year
  Sex: Female
  Weight: 186 kg

DRUGS (7)
  1. VITAMIN D3 [Concomitant]
     Active Substance: CHOLECALCIFEROL
     Dosage: 50 MICROGRAM
     Route: 048
     Dates: start: 20150326
  2. PROLIA [Suspect]
     Active Substance: DENOSUMAB
     Indication: OSTEOPOROSIS POSTMENOPAUSAL
     Dosage: 60 MILLIGRAM PER MILLILITRE, Q6MO
     Route: 058
     Dates: start: 20190723
  3. OXYCODONE AND ACETAMINOPHEN [Concomitant]
     Active Substance: ACETAMINOPHEN\OXYCODONE HYDROCHLORIDE
     Dosage: UNK, 5?325 MG
     Route: 048
     Dates: start: 20200725
  4. CENTRUM WOMEN [Concomitant]
     Active Substance: VITAMINS
     Dosage: TABLET
     Route: 048
     Dates: start: 20130909
  5. VITAMIN D [COLECALCIFEROL] [Concomitant]
     Active Substance: CHOLECALCIFEROL
     Dosage: 2000 INTERNATIONAL UNIT, QD
  6. CALCIUM [Concomitant]
     Active Substance: CALCIUM
     Dosage: UNK
  7. CENTRUM SILVER [ASCORBIC ACID;BIOTIN;BORON;CALCIUM;CALCIUM PANTOTHENAT [Concomitant]
     Dosage: UNK UNK, QD

REACTIONS (22)
  - Wrist fracture [Unknown]
  - Hypotension [Recovered/Resolved]
  - Anxiety [Unknown]
  - Myalgia [Unknown]
  - Upper respiratory tract infection [Unknown]
  - Hyperlipidaemia [Unknown]
  - Dizziness [Unknown]
  - Fall [Unknown]
  - Feeling abnormal [Unknown]
  - Joint swelling [Unknown]
  - Hypercalcaemia [Unknown]
  - Chondropathy [Unknown]
  - Dermatitis contact [Unknown]
  - Lyme disease [Unknown]
  - Rash erythematous [Unknown]
  - Nausea [Unknown]
  - Fatigue [Unknown]
  - Myositis [Unknown]
  - Palpitations [Unknown]
  - Muscle strain [Unknown]
  - Arthropod bite [Recovering/Resolving]
  - Bronchitis [Unknown]

NARRATIVE: CASE EVENT DATE: 20200725
